FAERS Safety Report 24046683 (Version 1)
Quarter: 2024Q3

REPORT INFORMATION
  Report Type: Spontaneous
  Country: JP (occurrence: JP)
  Receive Date: 20240703
  Receipt Date: 20240703
  Transmission Date: 20241017
  Serious: Yes (Other)
  Sender: BAYER
  Company Number: JP-BAYER-2024A095265

PATIENT
  Age: 73 Year
  Sex: Male

DRUGS (2)
  1. STIVARGA [Suspect]
     Active Substance: REGORAFENIB MONOHYDRATE
     Indication: Hepatocellular carcinoma
     Dosage: 120 MG (3 TABLETS/DOSE), ORAL, AFTER MEALS
     Route: 048
     Dates: start: 20240517, end: 20240519
  2. STIVARGA [Suspect]
     Active Substance: REGORAFENIB MONOHYDRATE
     Indication: Hepatocellular carcinoma
     Dosage: 80 MG (2 TABLETS/DOSE), ORAL, AFTER MEALS
     Route: 048
     Dates: start: 20240607, end: 20240613

REACTIONS (4)
  - Delirium [Recovered/Resolved]
  - Stomatitis [Recovered/Resolved]
  - Pharyngitis [Recovered/Resolved]
  - Product use issue [None]

NARRATIVE: CASE EVENT DATE: 20240519
